FAERS Safety Report 7536929-5 (Version None)
Quarter: 2011Q2

REPORT INFORMATION
  Report Type: 
  Country: None (occurrence: None)
  Receive Date: 20110609
  Receipt Date: 20110602
  Transmission Date: 20111010
  Serious: Yes (Other)
  Sender: FDA-Public Use
  Company Number: US-SANOFI-AVENTIS-2011SA027428

PATIENT
  Age: 68 Year
  Sex: Male
  Weight: 133.8 kg

DRUGS (14)
  1. GLIMEPIRIDE [Concomitant]
     Dosage: 1 TABLET DAILY
     Dates: start: 20050101
  2. HYDROCHLOROTHIAZIDE [Concomitant]
     Indication: DIURETIC THERAPY
     Dosage: 1 TAB DAILY IN AM
     Dates: start: 20050101
  3. NOVO-METOPROL [Concomitant]
     Dosage: 1/2 TABLET AM/ PM
  4. NOVOLOG [Concomitant]
     Dosage: DOSE:60 UNIT(S)
     Dates: start: 20050101
  5. CHONDROITIN SODIUM SULFATE W/GLUCOSAMINE HCL [Concomitant]
     Dosage: GLUCOSMAINE HCL 1500 MG AND CHONDROITIN SULFATE 1200 MG 2 TABS DAILY
  6. LEVEMIR [Concomitant]
  7. HYDROCODONE BITARTRATE + ACETAMINOPHEN [Concomitant]
     Dosage: 1 CAP DAILY AS NEEDED FOR PAIN
  8. ALL OTHER THERAPEUTIC PRODUCTS [Concomitant]
     Dosage: 1 TAB DAILY
  9. ASPIRIN [Concomitant]
  10. POTASSIUM CHLORIDE [Concomitant]
     Dosage: 1 TAB DAILY IN AM
     Dates: start: 20110101
  11. COQ10 [Concomitant]
     Dosage: 1 CAP DAILY AM
  12. LANTUS [Suspect]
     Indication: TYPE 2 DIABETES MELLITUS
     Dosage: DOSE:50 UNIT(S)
     Route: 058
     Dates: start: 20050101, end: 20110408
  13. CITALOPRAM HYDROBROMIDE [Concomitant]
     Indication: DEPRESSION
     Dosage: 1 TABLET DAILY IN PM
     Dates: start: 20100101
  14. LISINOPRIL [Concomitant]
     Dosage: 1 TAB DAILY AM

REACTIONS (6)
  - RASH [None]
  - RHINORRHOEA [None]
  - DYSPNOEA [None]
  - MUSCULAR WEAKNESS [None]
  - CONDITION AGGRAVATED [None]
  - AMNESIA [None]
